FAERS Safety Report 7893891-3 (Version None)
Quarter: 2011Q4

REPORT INFORMATION
  Report Type: 
  Country: None (occurrence: None)
  Receive Date: 20111104
  Receipt Date: 20111028
  Transmission Date: 20120403
  Serious: Yes (Hospitalization, Other)
  Sender: FDA-Public Use
  Company Number: PHEH2010US00461

PATIENT
  Sex: Male

DRUGS (16)
  1. ZOMETA [Suspect]
     Indication: MULTIPLE MYELOMA
  2. LASIX [Concomitant]
  3. ASPIRIN [Concomitant]
  4. ZANTAC [Concomitant]
  5. NIFEREX [Concomitant]
     Dosage: 150 MG, QD
  6. HYTRIN [Concomitant]
     Dosage: 2 MG, UNK
  7. TERAZOSIN HCL [Concomitant]
  8. FOLIC ACID [Concomitant]
     Dosage: 1 MG, QD
  9. NITROGLYCERIN [Concomitant]
     Dosage: 40 MG, UNK
  10. PREDNISONE [Concomitant]
  11. POTASSIUM [Concomitant]
  12. ATENOLOL [Concomitant]
  13. ZOCOR [Concomitant]
  14. ALKERAN [Concomitant]
  15. PLAVIX [Concomitant]
  16. IRON [Concomitant]

REACTIONS (52)
  - SPINAL COMPRESSION FRACTURE [None]
  - MYOCARDIAL INFARCTION [None]
  - GOUT [None]
  - TENDERNESS [None]
  - HYPERTENSION [None]
  - CONSTIPATION [None]
  - PERIPHERAL VASCULAR DISORDER [None]
  - URINARY TRACT INFECTION [None]
  - GINGIVAL DISORDER [None]
  - PATHOLOGICAL FRACTURE [None]
  - PAIN [None]
  - BONE LESION [None]
  - CARDIOMEGALY [None]
  - OSTEOARTHRITIS [None]
  - PAIN IN JAW [None]
  - PNEUMONIA [None]
  - GENERAL PHYSICAL HEALTH DETERIORATION [None]
  - ANXIETY [None]
  - OSTEOLYSIS [None]
  - ARTHRITIS [None]
  - AORTIC CALCIFICATION [None]
  - OSTEOMYELITIS [None]
  - CORONARY ARTERY DISEASE [None]
  - JOINT SWELLING [None]
  - SINUSITIS [None]
  - LUMBAR SPINAL STENOSIS [None]
  - PLEURAL EFFUSION [None]
  - ANHEDONIA [None]
  - DISABILITY [None]
  - POST HERPETIC NEURALGIA [None]
  - INTERVERTEBRAL DISC PROTRUSION [None]
  - INTERVERTEBRAL DISC DEGENERATION [None]
  - INFLUENZA [None]
  - OESOPHAGITIS [None]
  - PHARYNGEAL OEDEMA [None]
  - DELIRIUM [None]
  - DYSPNOEA [None]
  - ATELECTASIS [None]
  - CATARACT [None]
  - GASTROOESOPHAGEAL REFLUX DISEASE [None]
  - ASTHMA [None]
  - HERPES ZOSTER [None]
  - OSTEONECROSIS OF JAW [None]
  - ARTERIOSCLEROSIS [None]
  - THROMBOCYTOPENIA [None]
  - SPINAL OSTEOARTHRITIS [None]
  - ARTHRALGIA [None]
  - OSTEOPENIA [None]
  - ARRHYTHMIA [None]
  - LOOSE TOOTH [None]
  - EXPOSED BONE IN JAW [None]
  - CONFUSIONAL STATE [None]
